FAERS Safety Report 6134810-X (Version None)
Quarter: 2009Q1

REPORT INFORMATION
  Report Type: 
  Country: None (occurrence: None)
  Receive Date: 20090327
  Receipt Date: 20090317
  Transmission Date: 20090719
  Serious: Yes (Other)
  Sender: FDA-Public Use
  Company Number: GB-PFIZER INC-2009185579

PATIENT

DRUGS (10)
  1. EPLERENONE [Suspect]
     Indication: HYPERTENSION
     Route: 048
     Dates: end: 20090107
  2. ADCAL-D3 [Concomitant]
  3. ACETYLSALICYLIC ACID [Concomitant]
  4. BISOPROLOL FUMARATE [Concomitant]
  5. FUROSEMIDE [Concomitant]
  6. GABAPENTIN [Concomitant]
  7. GLYCERYL TRINITRATE [Concomitant]
  8. OMEPRAZOLE [Concomitant]
  9. PARACETAMOL [Concomitant]
  10. SIMVASTATIN [Concomitant]

REACTIONS (1)
  - PAIN IN EXTREMITY [None]
